FAERS Safety Report 5359858-4 (Version None)
Quarter: 2007Q2

REPORT INFORMATION
  Report Type: 
  Country: None (occurrence: None)
  Receive Date: 20070530
  Receipt Date: 20070123
  Transmission Date: 20071010
  Serious: No
  Sender: FDA-Public Use
  Company Number: 2007PV028848

PATIENT
  Age: 63 Year
  Sex: Male
  Weight: 89.8122 kg

DRUGS (6)
  1. BYETTA [Suspect]
     Indication: DIABETES MELLITUS NON-INSULIN-DEPENDENT
     Dosage: 5 MCG;BID;SC
     Dates: start: 20070121
  2. METFORMIN HCL [Concomitant]
  3. LANTUS [Concomitant]
  4. ACTOS [Concomitant]
  5. NEXIUM [Concomitant]
  6. NOVOLIN 70/30 [Concomitant]

REACTIONS (6)
  - ASTHENIA [None]
  - BLOOD GLUCOSE ABNORMAL [None]
  - DIZZINESS [None]
  - DRUG INEFFECTIVE [None]
  - NAUSEA [None]
  - SOMNOLENCE [None]
